FAERS Safety Report 4673987-X (Version None)
Quarter: 2005Q2

REPORT INFORMATION
  Report Type: 
  Country: None (occurrence: None)
  Receive Date: 20050525
  Receipt Date: 20050509
  Transmission Date: 20051028
  Serious: Yes (Hospitalization, Other)
  Sender: FDA-Public Use
  Company Number: EM2005-0028

PATIENT
  Age: 69 Year
  Sex: Male

DRUGS (9)
  1. ALDESLEUKIN [Suspect]
     Indication: LYMPHOMA
     Dosage: 14 MIU TIW SUBCUTANEOUS
     Route: 058
     Dates: start: 20041220, end: 20041229
  2. RITUXIMAB [Concomitant]
  3. SOTALOL HCL [Concomitant]
  4. LANSOPRAZOLE [Concomitant]
  5. ACETYLSALICYLIC LYSINE [Concomitant]
  6. SIMVASTATIN [Concomitant]
  7. RAMIPRIL [Concomitant]
  8. SERENOA REPENS [Concomitant]
  9. DIHYDROERGOCRYPTINE MEZILATE/CAFEINE [Concomitant]

REACTIONS (3)
  - CARDIAC DISORDER [None]
  - CORONARY ARTERY STENOSIS [None]
  - EJECTION FRACTION DECREASED [None]
